FAERS Safety Report 9450395 (Version 1)
Quarter: 2013Q3

REPORT INFORMATION
  Report Type: Spontaneous
  Country: ES (occurrence: ES)
  Receive Date: 20130809
  Receipt Date: 20130809
  Transmission Date: 20140515
  Serious: Yes (Hospitalization)
  Sender: FDA-Public Use
  Company Number: ES-JNJFOC-20130803185

PATIENT
  Age: 81 Year
  Sex: Female

DRUGS (7)
  1. PALEXIA RETARD [Suspect]
     Indication: ARTHRALGIA
     Dosage: 250 MG IN THE MORNING, 200 MG IN THE EVENING
     Route: 048
     Dates: start: 20121018, end: 20121112
  2. PARACETAMOL [Concomitant]
     Indication: PAIN
     Route: 048
     Dates: start: 2012
  3. PANTOPRAZOLE [Concomitant]
     Indication: PROPHYLAXIS AGAINST GASTROINTESTINAL ULCER
     Route: 048
     Dates: start: 2012
  4. CYMBALTA [Concomitant]
     Indication: DEPRESSION
     Route: 048
     Dates: start: 2012
  5. PROTELOS [Concomitant]
     Indication: OSTEOPOROSIS
     Route: 048
     Dates: start: 2012
  6. DEPRAX [Concomitant]
     Indication: DEPRESSION
     Route: 048
     Dates: start: 2012
  7. IDEOS [Concomitant]
     Indication: OSTEOPOROSIS
     Route: 048
     Dates: start: 2012

REACTIONS (2)
  - Confusional state [Recovered/Resolved]
  - Cholestasis [Recovered/Resolved]
